FAERS Safety Report 9825786 (Version 1)
Quarter: 2014Q1

REPORT INFORMATION
  Report Type: Spontaneous
  Country: US (occurrence: US)
  Receive Date: 20140117
  Receipt Date: 20140117
  Transmission Date: 20141002
  Serious: Yes (Other)
  Sender: FDA-Public Use
  Company Number: US-AMGEN-USASP2014002654

PATIENT
  Age: 41 Year
  Sex: Female

DRUGS (4)
  1. ENBREL [Suspect]
     Indication: RHEUMATOID ARTHRITIS
     Dosage: 50 MG, QWK
     Route: 058
  2. METHOTREXATE [Concomitant]
     Dosage: 17.5 MG, QWK
  3. FOLIC ACID [Concomitant]
     Dosage: UNK
  4. NAPROXEN [Concomitant]
     Dosage: 50 MG, BID

REACTIONS (1)
  - Papillary thyroid cancer [Unknown]
